FAERS Safety Report 7960110-9 (Version None)
Quarter: 2011Q4

REPORT INFORMATION
  Report Type: 
  Country: None (occurrence: None)
  Receive Date: 20111206
  Receipt Date: 20111130
  Transmission Date: 20120403
  Serious: Yes (Other)
  Sender: FDA-Public Use
  Company Number: CA-ABBOTT-11P-028-0877285-00

PATIENT
  Age: 83 Year
  Sex: Male
  Weight: 93.07 kg

DRUGS (7)
  1. LUPRON DEPOT [Suspect]
     Indication: TREATMENT FAILURE
  2. CASODEX [Concomitant]
     Indication: PROSTATE CANCER
     Route: 048
     Dates: start: 20110822
  3. LUPRON DEPOT [Suspect]
     Indication: PROSTATECTOMY
  4. MS CONTIN [Concomitant]
     Indication: PRODUCT USED FOR UNKNOWN INDICATION
     Route: 048
     Dates: start: 20111025, end: 20111115
  5. LUPRON DEPOT [Suspect]
     Indication: PROSTATE CANCER
     Route: 030
     Dates: start: 20100106
  6. PERCOCET [Concomitant]
     Indication: PRODUCT USED FOR UNKNOWN INDICATION
     Route: 048
     Dates: start: 20111025, end: 20111115
  7. MS CONTIN [Concomitant]
     Route: 048
     Dates: start: 20111115

REACTIONS (2)
  - ARTHRALGIA [None]
  - PROSTATE CANCER METASTATIC [None]
